FAERS Safety Report 5620655-3 (Version None)
Quarter: 2008Q1

REPORT INFORMATION
  Report Type: 
  Country: None (occurrence: None)
  Receive Date: 20080208
  Receipt Date: 20080129
  Transmission Date: 20080703
  Serious: Yes (Hospitalization)
  Sender: FDA-Public Use
  Company Number: FR-GILEAD-2008-0015144

PATIENT
  Sex: Male
  Weight: 52 kg

DRUGS (5)
  1. TRUVADA [Suspect]
     Indication: HIV INFECTION
     Route: 048
     Dates: start: 20071227
  2. SUSTIVA [Suspect]
     Indication: HIV INFECTION
     Route: 048
     Dates: start: 20071227
  3. RIFATER [Concomitant]
     Indication: TUBERCULOSIS
     Route: 048
     Dates: start: 20071123
  4. VITAMIN B6 [Concomitant]
     Indication: PROPHYLAXIS
     Route: 048
     Dates: start: 20071227
  5. BACTRIM [Concomitant]
     Indication: ANTIFUNGAL PROPHYLAXIS
     Route: 048
     Dates: start: 20071123

REACTIONS (5)
  - COUGH [None]
  - DIARRHOEA [None]
  - HYPERHIDROSIS [None]
  - PYREXIA [None]
  - SYSTEMIC INFLAMMATORY RESPONSE SYNDROME [None]
